FAERS Safety Report 20578604 (Version 3)
Quarter: 2022Q2

REPORT INFORMATION
  Report Type: Spontaneous
  Country: US (occurrence: US)
  Receive Date: 20220310
  Receipt Date: 20220411
  Transmission Date: 20220721
  Serious: Yes (Hospitalization)
  Sender: FDA-Public Use
  Company Number: US-BEH-2022143000

PATIENT
  Age: 33 Year
  Sex: Male
  Weight: 94.5 kg

DRUGS (6)
  1. HAEGARDA [Suspect]
     Active Substance: HUMAN C1-ESTERASE INHIBITOR
     Indication: Hereditary angioedema
     Dosage: UNK
     Route: 065
     Dates: start: 202109
  2. HAEGARDA [Suspect]
     Active Substance: HUMAN C1-ESTERASE INHIBITOR
     Indication: Prophylaxis
     Dosage: 5000 INTERNATIONAL UNIT/KILOGRAM, BIW
     Route: 058
  3. HAEGARDA [Suspect]
     Active Substance: HUMAN C1-ESTERASE INHIBITOR
     Indication: Hereditary angioedema
     Dosage: 5000 INTERNATIONAL UNIT/KILOGRAM, BIW
     Route: 065
  4. HAEGARDA [Suspect]
     Active Substance: HUMAN C1-ESTERASE INHIBITOR
     Indication: Hereditary angioedema
     Dosage: 5000 INTERNATIONAL UNIT/KILOGRAM, BIW
     Route: 065
  5. HAEGARDA [Suspect]
     Active Substance: HUMAN C1-ESTERASE INHIBITOR
     Indication: Prophylaxis
     Dosage: 5000 INTERNATIONAL UNIT/KILOGRAM, BIW
     Route: 058
  6. HAEGARDA [Suspect]
     Active Substance: HUMAN C1-ESTERASE INHIBITOR
     Indication: Hereditary angioedema

REACTIONS (12)
  - Malaise [Unknown]
  - Oropharyngeal pain [Unknown]
  - Rhinorrhoea [Unknown]
  - Ill-defined disorder [Recovered/Resolved]
  - Therapy interrupted [Recovered/Resolved]
  - Malaise [Unknown]
  - Injection site bruising [Unknown]
  - Injection site swelling [Unknown]
  - Injection site pain [Recovering/Resolving]
  - Injection site vesicles [Recovering/Resolving]
  - Arthropod bite [Recovering/Resolving]
  - Injection site swelling [Recovering/Resolving]

NARRATIVE: CASE EVENT DATE: 20220301
